FAERS Safety Report 9742085 (Version 2)
Quarter: 2013Q4

REPORT INFORMATION
  Report Type: Spontaneous
  Country: US (occurrence: US)
  Receive Date: 20131210
  Receipt Date: 20131210
  Transmission Date: 20140711
  Serious: Yes (Hospitalization)
  Sender: FDA-Public Use
  Company Number: 2012SP005091

PATIENT
  Age: 46 Year
  Sex: Male
  Weight: 75.7 kg

DRUGS (10)
  1. FLUOROURACIL [Suspect]
     Indication: COLORECTAL CANCER METASTATIC
     Route: 040
     Dates: start: 20120516, end: 20121017
  2. FLUOROURACIL [Suspect]
     Indication: COLORECTAL CANCER METASTATIC
     Route: 042
     Dates: start: 20120516, end: 20121017
  3. IRINOTECAN [Suspect]
     Indication: COLORECTAL CANCER METASTATIC
     Route: 042
     Dates: start: 20120516, end: 20121114
  4. FOLINIC ACID [Suspect]
     Indication: COLORECTAL CANCER METASTATIC
     Route: 042
     Dates: start: 20120516, end: 20121017
  5. DILAUDID [Concomitant]
     Dates: start: 20120531
  6. HYDROCODONE BITARTRATE [Concomitant]
     Dates: start: 20101208
  7. PARACETAMOL [Concomitant]
     Dates: start: 20101208
  8. LISINOPRIL [Concomitant]
     Dates: start: 20101213
  9. LOPRESSOR [Concomitant]
     Dates: start: 20001214
  10. FENTANYL [Concomitant]
     Dates: start: 20120531

REACTIONS (6)
  - Renal failure acute [Recovered/Resolved]
  - Clostridium difficile colitis [Recovered/Resolved]
  - Diarrhoea [Recovered/Resolved]
  - Fatigue [Recovered/Resolved]
  - Dehydration [Recovered/Resolved]
  - Hypovolaemia [Recovered/Resolved]
